FAERS Safety Report 6788849-1 (Version None)
Quarter: 2010Q2

REPORT INFORMATION
  Report Type: 
  Country: None (occurrence: None)
  Receive Date: 20100623
  Receipt Date: 20080714
  Transmission Date: 20101027
  Serious: Yes (Disabling)
  Sender: FDA-Public Use
  Company Number: US-PFIZER INC-2008042177

PATIENT
  Sex: Male
  Weight: 69 kg

DRUGS (7)
  1. GENOTROPIN [Suspect]
     Indication: GROWTH HORMONE DEFICIENCY
     Dates: start: 20030101, end: 20080512
  2. LORTAB [Concomitant]
  3. TESTOSTERONE [Concomitant]
  4. FLEXERIL [Concomitant]
  5. HYDROCODONE [Concomitant]
  6. ADDERALL 10 [Concomitant]
  7. XANAX [Concomitant]

REACTIONS (4)
  - ARTHRALGIA [None]
  - CARPAL TUNNEL SYNDROME [None]
  - MUSCULOSKELETAL PAIN [None]
  - VISUAL IMPAIRMENT [None]
